FAERS Safety Report 9770901 (Version 1)
Quarter: 2013Q4

REPORT INFORMATION
  Report Type: Spontaneous
  Country: US (occurrence: US)
  Receive Date: 20131218
  Receipt Date: 20131218
  Transmission Date: 20140711
  Serious: No
  Sender: FDA-Public Use
  Company Number: US-BIOGENIDEC-2013BI120286

PATIENT
  Sex: Female

DRUGS (16)
  1. TECFIDERA [Suspect]
     Indication: MULTIPLE SCLEROSIS
     Route: 048
     Dates: start: 20130610
  2. ADVIL [Concomitant]
  3. AMBIEN [Concomitant]
  4. ASPIRIN [Concomitant]
  5. BENADRYL [Concomitant]
  6. DOXYCYCLINE HYCLATE [Concomitant]
  7. EVISTA [Concomitant]
  8. FLAX SEED OIL [Concomitant]
  9. FLUOXETINE HCL [Concomitant]
  10. INDERAL LA [Concomitant]
  11. MULTI FOR HER [Concomitant]
  12. NIACIN [Concomitant]
  13. PROZAC [Concomitant]
  14. REQUIP [Concomitant]
  15. SIMVASTATIN [Concomitant]
  16. VALIUM [Concomitant]

REACTIONS (1)
  - Influenza like illness [Unknown]
